FAERS Safety Report 4985831-1 (Version None)
Quarter: 2006Q2

REPORT INFORMATION
  Report Type: 
  Country: None (occurrence: None)
  Receive Date: 20060421
  Receipt Date: 20060417
  Transmission Date: 20061013
  Serious: Yes (Hospitalization, Other)
  Sender: FDA-Public Use
  Company Number: 2006038163

PATIENT
  Age: 41 Year
  Sex: Male

DRUGS (5)
  1. AZULFIDINE [Suspect]
     Indication: RHEUMATOID ARTHRITIS
     Dosage: 500 MG (500 MG, 1 IN 1 D), ORAL
     Route: 048
     Dates: start: 20050318, end: 20060315
  2. SELBEX (TEPRENONE) [Concomitant]
  3. FAMOTIDINE [Concomitant]
  4. MOHRUS (KETOPROFEN) [Concomitant]
  5. ISODINE (POVIDONE-IODINE) [Concomitant]

REACTIONS (6)
  - CONVULSION [None]
  - GRAND MAL CONVULSION [None]
  - LOSS OF CONSCIOUSNESS [None]
  - TACHYCARDIA [None]
  - TINNITUS [None]
  - TREMOR [None]
